FAERS Safety Report 16097226 (Version 3)
Quarter: 2019Q2

REPORT INFORMATION
  Report Type: Report from Study
  Country: US (occurrence: US)
  Receive Date: 20190320
  Receipt Date: 20190426
  Transmission Date: 20190711
  Serious: Yes (Other)
  Sender: FDA-Public Use
  Company Number: US-JNJFOC-20181115884

PATIENT
  Sex: Male

DRUGS (4)
  1. IMBRUVICA [Suspect]
     Active Substance: IBRUTINIB
     Indication: CHRONIC LYMPHOCYTIC LEUKAEMIA
     Dosage: 1 EXPDT=31-DEC-2019
     Route: 048
     Dates: start: 20190414
  2. IMBRUVICA [Suspect]
     Active Substance: IBRUTINIB
     Indication: CHRONIC LYMPHOCYTIC LEUKAEMIA
     Dosage: 1 EXPDT=31-DEC-2019
     Route: 048
     Dates: start: 20190315
  3. IMBRUVICA [Suspect]
     Active Substance: IBRUTINIB
     Indication: CHRONIC LYMPHOCYTIC LEUKAEMIA
     Dosage: 1 EXPDT=31-DEC-2019
     Route: 048
     Dates: start: 20181103
  4. IMBRUVICA [Suspect]
     Active Substance: IBRUTINIB
     Indication: CHRONIC LYMPHOCYTIC LEUKAEMIA
     Dosage: 1 EXPDT=31-DEC-2019
     Route: 048
     Dates: start: 20190223

REACTIONS (5)
  - Haemoglobin increased [Unknown]
  - Joint swelling [Recovering/Resolving]
  - Vascular rupture [Unknown]
  - Haematuria [Unknown]
  - Asthenia [Recovering/Resolving]
